FAERS Safety Report 9759761 (Version 1)
Quarter: 2013Q4

REPORT INFORMATION
  Report Type: Spontaneous
  Country: US (occurrence: US)
  Receive Date: 20131216
  Receipt Date: 20131216
  Transmission Date: 20140711
  Serious: No
  Sender: FDA-Public Use
  Company Number: US-ABBVIE-13P-163-1046857-00

PATIENT
  Sex: Female
  Weight: 85.35 kg

DRUGS (5)
  1. TRILIPIX [Suspect]
     Indication: BLOOD CHOLESTEROL
  2. ATORVASTATIN MYLAN [Suspect]
     Indication: BLOOD CHOLESTEROL
  3. METFORMIN [Concomitant]
     Indication: DIABETES MELLITUS
  4. AMLODIPINE [Concomitant]
     Indication: HYPERTENSION
  5. LOSARTAN [Concomitant]
     Indication: HYPERTENSION

REACTIONS (2)
  - Muscle spasms [Not Recovered/Not Resolved]
  - Insomnia [Not Recovered/Not Resolved]
